FAERS Safety Report 5732052-0 (Version None)
Quarter: 2008Q2

REPORT INFORMATION
  Report Type: 
  Country: None (occurrence: None)
  Receive Date: 20080506
  Receipt Date: 20080421
  Transmission Date: 20081010
  Serious: Yes (Hospitalization)
  Sender: FDA-Public Use
  Company Number: 08P-062-0448332-00

PATIENT
  Age: 1 Year
  Sex: Female

DRUGS (2)
  1. SYNAGIS [Suspect]
     Indication: ANTIVIRAL PROPHYLAXIS
     Dates: end: 20080326
  2. SYNAGIS [Suspect]
     Indication: IMMUNISATION
     Dates: end: 20080326

REACTIONS (1)
  - BRONCHITIS CHRONIC [None]
